FAERS Safety Report 9213117 (Version 1)
Quarter: 2013Q2

REPORT INFORMATION
  Report Type: Spontaneous
  Country: US (occurrence: US)
  Receive Date: 20130405
  Receipt Date: 20130405
  Transmission Date: 20140414
  Serious: No
  Sender: FDA-Public Use
  Company Number: US-PFIZER INC-2013105709

PATIENT
  Sex: Female

DRUGS (1)
  1. CELEBREX [Suspect]
     Dosage: UNK
     Dates: start: 20130401

REACTIONS (5)
  - Hypersensitivity [Unknown]
  - Swelling [Unknown]
  - Nausea [Unknown]
  - Vomiting [Unknown]
  - Migraine [Unknown]
